FAERS Safety Report 4414084-8 (Version None)
Quarter: 2004Q3

REPORT INFORMATION
  Report Type: 
  Country: None (occurrence: None)
  Receive Date: 20040803
  Receipt Date: 20040726
  Transmission Date: 20050211
  Serious: Yes (Other)
  Sender: FDA-Public Use
  Company Number: PHFR2004GB02962

PATIENT
  Age: 51 Year
  Sex: 0

DRUGS (2)
  1. DICLOFENAC [Suspect]
     Indication: OSTEOARTHRITIS
     Dosage: 50 MG, BID
     Route: 048
     Dates: start: 20040616, end: 20040628
  2. PARACETAMOL [Concomitant]
     Indication: BACK PAIN
     Dosage: 1000MG/DAY
     Route: 048

REACTIONS (3)
  - DIZZINESS [None]
  - MALAISE [None]
  - SWOLLEN TONGUE [None]
